FAERS Safety Report 8500354-0 (Version None)
Quarter: 2012Q3

REPORT INFORMATION
  Report Type: 
  Country: None (occurrence: None)
  Receive Date: 20120705
  Receipt Date: 20120705
  Transmission Date: 20120928
  Serious: Yes (Life-Threatening, Hospitalization)
  Sender: FDA-Public Use
  Company Number: None

PATIENT
  Age: 54 Year
  Sex: Female
  Weight: 74.3899 kg

DRUGS (1)
  1. EVISTA [Suspect]
     Indication: BREAST CANCER
     Dosage: ONE TABLET DAILY PO
     Route: 048
     Dates: start: 20080701, end: 20120701

REACTIONS (1)
  - TRANSIENT ISCHAEMIC ATTACK [None]
